FAERS Safety Report 17655867 (Version 1)
Quarter: 2020Q2

REPORT INFORMATION
  Report Type: Spontaneous
  Country: US (occurrence: US)
  Receive Date: 20200409
  Receipt Date: 20200409
  Transmission Date: 20200713
  Serious: Yes (Hospitalization)
  Sender: FDA-Public Use
  Company Number: None

PATIENT
  Age: 69 Year
  Sex: Male

DRUGS (2)
  1. GEMCITABINE (GEMCITABINE HCL 200MG/CIL INJ) [Suspect]
     Active Substance: GEMCITABINE HYDROCHLORIDE
     Indication: PANCREATIC CARCINOMA STAGE IV
     Dates: start: 20161206, end: 20161213
  2. PACLITAXEL  (PACLITAXEL PROTEIN-BOUND 100MG/VIL INJ) [Suspect]
     Active Substance: PACLITAXEL
     Indication: PANCREATIC CARCINOMA STAGE IV
     Dates: start: 20161206, end: 20161213

REACTIONS (2)
  - Cellulitis [None]
  - Mucosal inflammation [None]

NARRATIVE: CASE EVENT DATE: 20161219
